FAERS Safety Report 5279808-9 (Version None)
Quarter: 2007Q1

REPORT INFORMATION
  Report Type: 
  Country: None (occurrence: None)
  Receive Date: 20061212
  Receipt Date: 20041130
  Transmission Date: 20070707
  Serious: Yes (Other)
  Sender: FDA-Public Use
  Company Number: 2004UW24507

PATIENT
  Age: 10 Year
  Sex: Male

DRUGS (1)
  1. RHINOCORT [Suspect]
     Dates: start: 20041130

REACTIONS (2)
  - ACCIDENTAL EXPOSURE [None]
  - DYSPHONIA [None]
